FAERS Safety Report 16038419 (Version 2)
Quarter: 2019Q3

REPORT INFORMATION
  Report Type: Spontaneous
  Country: CA (occurrence: CA)
  Receive Date: 20190305
  Receipt Date: 20190716
  Transmission Date: 20191004
  Serious: Yes (Other)
  Sender: FDA-Public Use
  Company Number: CA-BAUSCH-BL-2019-006736

PATIENT
  Age: 46 Year
  Sex: Female

DRUGS (1)
  1. METRONIDAZOLE. [Suspect]
     Active Substance: METRONIDAZOLE
     Indication: PRODUCT USED FOR UNKNOWN INDICATION
     Route: 065
     Dates: start: 201612

REACTIONS (3)
  - Subcutaneous abscess [Unknown]
  - Fistula [Unknown]
  - Fungal infection [Unknown]

NARRATIVE: CASE EVENT DATE: 2017
